FAERS Safety Report 4441806-2 (Version None)
Quarter: 2004Q3

REPORT INFORMATION
  Report Type: 
  Country: None (occurrence: None)
  Receive Date: 20040907
  Receipt Date: 20040702
  Transmission Date: 20050211
  Serious: Yes (Hospitalization, Other)
  Sender: FDA-Public Use
  Company Number: US-MERCK-0407USA00328

PATIENT
  Age: 87 Year
  Sex: Female

DRUGS (12)
  1. DECADRON [Suspect]
     Route: 065
  2. BENADRYL [Suspect]
     Route: 065
  3. PEPCID [Concomitant]
     Route: 065
  4. ALLEGRA [Concomitant]
     Route: 048
  5. PROZAC [Concomitant]
     Route: 048
     Dates: start: 20031101
  6. ATARAX [Concomitant]
     Route: 065
     Dates: start: 20031101
  7. PREVACID [Suspect]
     Route: 048
  8. TOPROL-XL [Suspect]
     Route: 065
     Dates: start: 20031101, end: 20031121
  9. TOPROL-XL [Suspect]
     Route: 065
     Dates: start: 20031101
  10. CENTRUM [Concomitant]
     Route: 065
  11. SINGULAIR [Suspect]
     Indication: ASTHMA
     Route: 048
  12. PREDNISONE [Concomitant]
     Route: 065
     Dates: start: 20031101

REACTIONS (11)
  - ARRHYTHMIA [None]
  - CEREBROVASCULAR ACCIDENT [None]
  - CONFUSIONAL STATE [None]
  - DECREASED APPETITE [None]
  - DYSPHAGIA [None]
  - DYSPNOEA [None]
  - FATIGUE [None]
  - HYPERSENSITIVITY [None]
  - SYNCOPE [None]
  - SYNCOPE VASOVAGAL [None]
  - TRANSIENT ISCHAEMIC ATTACK [None]
